FAERS Safety Report 9283998 (Version 1)
Quarter: 2013Q2

REPORT INFORMATION
  Report Type: Spontaneous
  Country: US (occurrence: None)
  Receive Date: 20130503
  Receipt Date: 20130503
  Transmission Date: 20140414
  Serious: No
  Sender: FDA-Public Use
  Company Number: THQ2013A03201

PATIENT
  Age: 90 Year
  Sex: Female

DRUGS (1)
  1. LANSOPRAZOLE (LANSOPRAZOLE) [Suspect]
     Indication: GASTROOESOPHAGEAL REFLUX DISEASE

REACTIONS (2)
  - Hallucination, visual [None]
  - Condition aggravated [None]
